FAERS Safety Report 16856904 (Version 1)
Quarter: 2019Q3

REPORT INFORMATION
  Report Type: Spontaneous
  Country: PT (occurrence: PT)
  Receive Date: 20190926
  Receipt Date: 20190926
  Transmission Date: 20191005
  Serious: Yes (Death, Hospitalization, Other)
  Sender: FDA-Public Use
  Company Number: PT-SA-2019SA266408

PATIENT
  Age: 66 Year
  Sex: Female

DRUGS (8)
  1. MEXAZOLAM [Concomitant]
     Active Substance: MEXAZOLAM
     Indication: INFLUENZA LIKE ILLNESS
  2. RANITIDINE. [Suspect]
     Active Substance: RANITIDINE
     Indication: DYSPEPSIA
  3. PROPRANOLOL [Concomitant]
     Active Substance: PROPRANOLOL HYDROCHLORIDE
     Indication: DYSPEPSIA
  4. CETIRIZINE [Concomitant]
     Active Substance: CETIRIZINE HYDROCHLORIDE
     Indication: INFLUENZA LIKE ILLNESS
  5. CETIRIZINE [Concomitant]
     Active Substance: CETIRIZINE HYDROCHLORIDE
     Indication: DYSPEPSIA
  6. PROPRANOLOL [Concomitant]
     Active Substance: PROPRANOLOL HYDROCHLORIDE
     Indication: INFLUENZA LIKE ILLNESS
  7. MEXAZOLAM [Concomitant]
     Active Substance: MEXAZOLAM
     Indication: DYSPEPSIA
  8. RANITIDINE. [Suspect]
     Active Substance: RANITIDINE
     Indication: INFLUENZA LIKE ILLNESS

REACTIONS (20)
  - Acute hepatic failure [Fatal]
  - Prothrombin time prolonged [Fatal]
  - Activated partial thromboplastin time prolonged [Fatal]
  - Hepatic siderosis [Fatal]
  - Hepatic encephalopathy [Fatal]
  - Hypoglycaemia [Fatal]
  - Hyperbilirubinaemia [Fatal]
  - Aspartate aminotransferase increased [Fatal]
  - Gamma-glutamyltransferase increased [Fatal]
  - Hepatic necrosis [Fatal]
  - Coagulation factor V level decreased [Fatal]
  - Alanine aminotransferase increased [Fatal]
  - Blood alkaline phosphatase increased [Fatal]
  - Hepatitis acute [Fatal]
  - Hepatic infiltration eosinophilic [Fatal]
  - Hepatic steatosis [Fatal]
  - Drug-induced liver injury [Fatal]
  - Jaundice [Fatal]
  - Upper gastrointestinal haemorrhage [Fatal]
  - Hypovolaemic shock [Fatal]
